FAERS Safety Report 10206913 (Version 1)
Quarter: 2014Q2

REPORT INFORMATION
  Report Type: Spontaneous
  Country: US (occurrence: None)
  Receive Date: 20140527
  Receipt Date: 20140527
  Transmission Date: 20141212
  Serious: Yes (Hospitalization)
  Sender: FDA-Public Use
  Company Number: None

PATIENT
  Age: 59 Year
  Sex: Female

DRUGS (11)
  1. ARGATROBAN [Suspect]
     Indication: ANTICOAGULANT THERAPY
     Dosage: 0.45 MCG/KG/MIN?CONTINUOUS ?IV
     Route: 042
     Dates: start: 20120605, end: 20120626
  2. AMIODARONE [Concomitant]
  3. ARGATROBAN [Concomitant]
  4. DOCUSATE [Concomitant]
  5. ESCITALOPRAM [Concomitant]
  6. FENTANYL [Concomitant]
  7. INSULIN GLARGINE [Concomitant]
  8. LEVOFLOXACIN [Concomitant]
  9. MULTIVITAMIN [Concomitant]
  10. RANITIDINE [Concomitant]
  11. XENADERM OINTMENT [Concomitant]

REACTIONS (1)
  - Rectal haemorrhage [None]
